FAERS Safety Report 6336558-5 (Version None)
Quarter: 2009Q3

REPORT INFORMATION
  Report Type: 
  Country: None (occurrence: None)
  Receive Date: 20090901
  Receipt Date: 20090824
  Transmission Date: 20100115
  Serious: Yes (Hospitalization)
  Sender: FDA-Public Use
  Company Number: US-ROCHE-652646

PATIENT
  Age: 83 Year
  Sex: Female

DRUGS (1)
  1. BONIVA [Suspect]
     Indication: OSTEOPOROSIS
     Dosage: THERAPY DURATION REPORTED AS ^QUITE A LONG WHILE^.
     Route: 048

REACTIONS (8)
  - ABDOMINAL DISCOMFORT [None]
  - BACK PAIN [None]
  - DIARRHOEA [None]
  - FALL [None]
  - HYPOTENSION [None]
  - LIMB CRUSHING INJURY [None]
  - NAUSEA [None]
  - WRIST FRACTURE [None]
